FAERS Safety Report 8049222-1 (Version None)
Quarter: 2012Q1

REPORT INFORMATION
  Report Type: 
  Country: None (occurrence: None)
  Receive Date: 20120117
  Receipt Date: 20120110
  Transmission Date: 20120608
  Serious: Yes (Other)
  Sender: FDA-Public Use
  Company Number: JP-JNJFOC-20120104585

PATIENT
  Age: 46 Year
  Sex: Female

DRUGS (5)
  1. FENTANYL-100 [Suspect]
     Route: 062
     Dates: start: 20111208
  2. TRAMADOL HYDROCHLORIDE/ACETAMINOPHEN [Suspect]
     Indication: PAIN
     Dosage: 8 DOSES X 1 PER 1 DAY
     Route: 048
     Dates: start: 20110101, end: 20111208
  3. LYRICA [Concomitant]
     Indication: PAIN
     Route: 048
  4. AMITRIPTYLINE HCL [Concomitant]
     Indication: PAIN
     Route: 065
  5. FENTANYL-100 [Suspect]
     Indication: PAIN
     Route: 062

REACTIONS (4)
  - WITHDRAWAL SYNDROME [None]
  - PALPITATIONS [None]
  - MALAISE [None]
  - HYPERHIDROSIS [None]
